FAERS Safety Report 8974658 (Version 1)
Quarter: 2012Q4

REPORT INFORMATION
  Report Type: 
  Country: US (occurrence: US)
  Receive Date: 20121219
  Receipt Date: 20121219
  Transmission Date: 20130627
  Serious: No
  Sender: FDA-Public Use
  Company Number: US-AMGEN-USASP2012056041

PATIENT
  Age: 79 Year
  Sex: Female

DRUGS (5)
  1. PROLIA [Suspect]
     Indication: OSTEOPOROSIS POSTMENOPAUSAL
     Dosage: UNK UNK, q6mo
     Dates: start: 20120228
  2. PROLIA [Suspect]
     Dosage: UNK, q6mo
     Dates: start: 20120828
  3. LOSARTAN + HIDROCLOROTIAZIDA [Concomitant]
     Dosage: UNK
  4. ALPRAZOLAM [Concomitant]
     Dosage: UNK
  5. ALBUTEROL                          /00139501/ [Concomitant]
     Dosage: UNK

REACTIONS (2)
  - Dizziness [Not Recovered/Not Resolved]
  - Hot flush [Not Recovered/Not Resolved]
